FAERS Safety Report 10994158 (Version 1)
Quarter: 2015Q2

REPORT INFORMATION
  Report Type: Spontaneous
  Country: US (occurrence: US)
  Receive Date: 20150407
  Receipt Date: 20150407
  Transmission Date: 20150821
  Serious: No
  Sender: FDA-Public Use
  Company Number: US-BAYER-2015-087755

PATIENT
  Age: 45 Year
  Sex: Male

DRUGS (1)
  1. GADAVIST [Suspect]
     Active Substance: GADOBUTROL
     Indication: ARTERIOGRAM CAROTID
     Dosage: 1 MG/KG, ONCE
     Route: 042

REACTIONS (3)
  - Nausea [None]
  - Vomiting [None]
  - Vertigo [None]

NARRATIVE: CASE EVENT DATE: 20150226
